FAERS Safety Report 6782764-5 (Version None)
Quarter: 2010Q2

REPORT INFORMATION
  Report Type: 
  Country: None (occurrence: None)
  Receive Date: 20100621
  Receipt Date: 20100616
  Transmission Date: 20101027
  Serious: Yes (Death)
  Sender: FDA-Public Use
  Company Number: CA-ABBOTT-10P-028-0644905-00

PATIENT
  Sex: Male

DRUGS (1)
  1. LUPRON DEPOT [Suspect]
     Indication: PROSTATE CANCER
     Route: 050
     Dates: end: 20100128

REACTIONS (4)
  - CONDITION AGGRAVATED [None]
  - METASTASES TO BONE [None]
  - PULMONARY EMBOLISM [None]
  - RESPIRATORY DISTRESS [None]
